FAERS Safety Report 7921053-X (Version None)
Quarter: 2011Q4

REPORT INFORMATION
  Report Type: 
  Country: None (occurrence: None)
  Receive Date: 20111117
  Receipt Date: 20111108
  Transmission Date: 20120403
  Serious: Yes (Congenital Anomaly, Other)
  Sender: FDA-Public Use
  Company Number: AR-B.I. PHARMACEUTICALS,INC./RIDGEFIELD-2011-BP-24448BP

PATIENT
  Sex: Male
  Weight: 1.55 kg

DRUGS (4)
  1. VIRAMUNE [Suspect]
     Indication: MATERNAL EXPOSURE DURING PREGNANCY
     Route: 064
     Dates: start: 20091015, end: 20100215
  2. VIREAD [Concomitant]
     Indication: MATERNAL EXPOSURE DURING PREGNANCY
     Route: 064
     Dates: start: 20100215
  3. KALETRA [Concomitant]
     Indication: MATERNAL EXPOSURE DURING PREGNANCY
     Route: 064
     Dates: start: 20100215
  4. LAMIVUDINE + ZIDOVUDINE [Concomitant]
     Indication: MATERNAL EXPOSURE DURING PREGNANCY
     Route: 064
     Dates: start: 20091015

REACTIONS (3)
  - PREMATURE BABY [None]
  - LOW BIRTH WEIGHT BABY [None]
  - VENTRICULAR SEPTAL DEFECT [None]
